FAERS Safety Report 20050834 (Version 1)
Quarter: 2021Q4

REPORT INFORMATION
  Report Type: Spontaneous
  Country: US (occurrence: US)
  Receive Date: 20211110
  Receipt Date: 20211110
  Transmission Date: 20220304
  Serious: No
  Sender: FDA-Public Use
  Company Number: US-SA-SAC20211107000087

PATIENT
  Age: 56 Year
  Sex: Female

DRUGS (2)
  1. DUPIXENT [Suspect]
     Active Substance: DUPILUMAB
     Indication: Asthma
     Dosage: 300 MG, QOW
     Route: 058
  2. EUFLEXXA [Concomitant]
     Active Substance: HYALURONATE SODIUM
     Dosage: 2 ML

REACTIONS (3)
  - Malaise [Unknown]
  - Surgery [Unknown]
  - Product use issue [Unknown]
